FAERS Safety Report 6187745-0 (Version None)
Quarter: 2009Q2

REPORT INFORMATION
  Report Type: 
  Country: None (occurrence: None)
  Receive Date: 20090513
  Receipt Date: 20090507
  Transmission Date: 20091009
  Serious: Yes (Death, Hospitalization, Other)
  Sender: FDA-Public Use
  Company Number: GB-SANOFI-SYNTHELABO-A01200903449

PATIENT
  Age: 66 Year
  Sex: Female

DRUGS (11)
  1. CIPROFLOXACIN [Concomitant]
     Dosage: 400 MG
     Route: 041
     Dates: start: 20090221, end: 20090301
  2. NEUPOGEN [Concomitant]
  3. OCTREOTIDE ACETATE [Concomitant]
     Indication: DIARRHOEA
     Dosage: UNK
     Dates: start: 20090223, end: 20090224
  4. NEUPOGEN [Concomitant]
     Indication: NEUTROPENIA
     Dosage: UNK
  5. HALOPERIDOL [Concomitant]
     Dosage: 1 MG
     Dates: start: 20090225, end: 20090301
  6. BUSCOPAN [Concomitant]
     Dosage: 6 MCG
  7. CEFUROXIME SODIUM [Concomitant]
     Indication: PYREXIA
     Dosage: 750 MG
     Route: 042
  8. AVASTIN [Suspect]
     Indication: METASTASES TO LUNG
     Dosage: UNK
     Route: 065
  9. OXALIPLATIN [Suspect]
     Indication: COLORECTAL CANCER METASTATIC
     Dosage: 200 MG
     Route: 041
  10. XELODA [Suspect]
     Indication: COLORECTAL CANCER METASTATIC
     Route: 048
     Dates: start: 20090119
  11. MORPHINE [Concomitant]
     Dosage: UNK

REACTIONS (4)
  - COLITIS [None]
  - COLITIS ISCHAEMIC [None]
  - DIARRHOEA [None]
  - MIGRAINE [None]
